FAERS Safety Report 7041566-5 (Version None)
Quarter: 2010Q4

REPORT INFORMATION
  Report Type: 
  Country: None (occurrence: None)
  Receive Date: 20101013
  Receipt Date: 20090928
  Transmission Date: 20110411
  Serious: No
  Sender: FDA-Public Use
  Company Number: US-ASTRAZENECA-2009SE15823

PATIENT
  Age: 63 Year
  Sex: Male
  Weight: 64 kg

DRUGS (3)
  1. SYMBICORT [Suspect]
     Dosage: 160, 2 PUFFS BID
     Route: 055
  2. METFORMIN [Concomitant]
  3. LORCO [Concomitant]

REACTIONS (2)
  - CHEST PAIN [None]
  - DRUG DOSE OMISSION [None]
